FAERS Safety Report 8454696-8 (Version None)
Quarter: 2012Q2

REPORT INFORMATION
  Report Type: 
  Country: None (occurrence: None)
  Receive Date: 20120615
  Receipt Date: 20120615
  Transmission Date: 20120825
  Serious: No
  Sender: FDA-Public Use
  Company Number: None

PATIENT
  Age: 48 Year
  Sex: Female

DRUGS (1)
  1. MORPHINE [Suspect]
     Indication: DIVERTICULITIS
     Dosage: MORPHINE IV  1 IV DOSE GIVEN
     Route: 042
     Dates: start: 20110101

REACTIONS (2)
  - RASH GENERALISED [None]
  - RASH PRURITIC [None]
